FAERS Safety Report 19162248 (Version 1)
Quarter: 2021Q2

REPORT INFORMATION
  Report Type: Spontaneous
  Country: US (occurrence: US)
  Receive Date: 20210419
  Receipt Date: 20210419
  Transmission Date: 20210717
  Serious: Yes (Life-Threatening)
  Sender: FDA-Public Use
  Company Number: None

PATIENT
  Age: 68 Year
  Sex: Female

DRUGS (6)
  1. VENTOLIN [Concomitant]
     Active Substance: ALBUTEROL SULFATE
  2. VITAMINS 50+ WOMEN [Concomitant]
  3. NITRO [Concomitant]
     Active Substance: NITROGLYCERIN
  4. NO DRUG NAME [Concomitant]
  5. PREVACID [Concomitant]
     Active Substance: LANSOPRAZOLE
  6. ELIQUIS [Suspect]
     Active Substance: APIXABAN
     Indication: ATRIAL FIBRILLATION
     Dosage: ?          QUANTITY:1 DF DOSAGE FORM;?
     Route: 048
     Dates: start: 20210205, end: 20210224

REACTIONS (4)
  - Brain injury [None]
  - Intestinal obstruction [None]
  - Urinary tract infection [None]
  - Haemorrhage [None]
